FAERS Safety Report 5145818-5 (Version None)
Quarter: 2006Q4

REPORT INFORMATION
  Report Type: 
  Country: None (occurrence: None)
  Receive Date: 20061108
  Receipt Date: 20061031
  Transmission Date: 20070319
  Serious: Yes (Hospitalization, Disabling)
  Sender: FDA-Public Use
  Company Number: US-JNJFOC-20060900661

PATIENT
  Sex: Female
  Weight: 97.98 kg

DRUGS (6)
  1. REMICADE [Suspect]
     Route: 042
  2. REMICADE [Suspect]
     Indication: RHEUMATOID ARTHRITIS
     Route: 042
  3. METHOTREXATE [Concomitant]
     Indication: RHEUMATOID ARTHRITIS
     Route: 058
  4. UNIRETIC [Concomitant]
     Indication: HYPERTENSION
     Dosage: 15-12.5 MG
  5. DARVOCET-N 100 [Concomitant]
     Indication: PAIN
     Dosage: 15-12.5 MG
  6. FOLIC ACID [Concomitant]
     Indication: DRUG THERAPY
     Dosage: 15-12.5 MG

REACTIONS (3)
  - SCLERITIS [None]
  - ULCERATIVE KERATITIS [None]
  - UVEITIS [None]
